FAERS Safety Report 7851567-2 (Version None)
Quarter: 2011Q4

REPORT INFORMATION
  Report Type: 
  Country: None (occurrence: None)
  Receive Date: 20111026
  Receipt Date: 20110929
  Transmission Date: 20120403
  Serious: Yes (Death, Hospitalization)
  Sender: FDA-Public Use
  Company Number: DE-ROCHE-1005842

PATIENT
  Sex: Female

DRUGS (6)
  1. SULFASALAZINE [Concomitant]
     Indication: RHEUMATOID ARTHRITIS
     Dates: start: 20101101, end: 20110101
  2. ACTEMRA [Suspect]
     Indication: RHEUMATOID ARTHRITIS
     Route: 042
     Dates: end: 20110601
  3. HYDROXYCHLOROQUINE SULFATE [Concomitant]
     Indication: RHEUMATOID ARTHRITIS
     Dates: start: 20100901, end: 20101001
  4. MIRTAZAPINE [Concomitant]
  5. PREDNISOLONE [Concomitant]
     Indication: RHEUMATOID ARTHRITIS
     Dates: start: 20050601, end: 20110601
  6. EXELON [Concomitant]
     Route: 062

REACTIONS (2)
  - LOCALISED INFECTION [None]
  - RESPIRATORY FAILURE [None]
